FAERS Safety Report 18166944 (Version 1)
Quarter: 2020Q3

REPORT INFORMATION
  Report Type: Spontaneous
  Country: GB (occurrence: GB)
  Receive Date: 20200819
  Receipt Date: 20200819
  Transmission Date: 20201103
  Serious: Yes (Other)
  Sender: FDA-Public Use
  Company Number: GB-ALKEM LABORATORIES LIMITED-GB-ALKEM-2020-04796

PATIENT
  Age: 71 Year
  Sex: Female

DRUGS (3)
  1. EZETIMIBE. [Suspect]
     Active Substance: EZETIMIBE
     Indication: ARTERIOSCLEROSIS
     Dosage: UNK (EVERY)
     Route: 065
     Dates: start: 201911
  2. EZETIMIBE. [Suspect]
     Active Substance: EZETIMIBE
     Dosage: UNK (EVERY)
     Route: 065
     Dates: start: 202007
  3. EZETIMIBE. [Suspect]
     Active Substance: EZETIMIBE
     Dosage: UNK (EVERY)
     Route: 065
     Dates: start: 202001

REACTIONS (1)
  - Myocardial infarction [Unknown]
